FAERS Safety Report 18798355 (Version 1)
Quarter: 2021Q1

REPORT INFORMATION
  Report Type: Spontaneous
  Country: PL (occurrence: PL)
  Receive Date: 20210128
  Receipt Date: 20210128
  Transmission Date: 20210419
  Serious: Yes (Hospitalization, Disabling)
  Sender: FDA-Public Use
  Company Number: PL-TEVA-2021-PL-1871897

PATIENT
  Age: 43 Year
  Sex: Male

DRUGS (3)
  1. LEVOFLOXACIN. [Suspect]
     Active Substance: LEVOFLOXACIN
     Indication: ANTIBIOTIC THERAPY
     Dosage: 1500 MILLIGRAM DAILY; FOR THE FIRST THREE DAYS
     Route: 048
  2. MAGNESIUM SULFATE. [Suspect]
     Active Substance: MAGNESIUM SULFATE
     Indication: OXIDATIVE STRESS
     Route: 065
  3. LEVOFLOXACIN. [Suspect]
     Active Substance: LEVOFLOXACIN
     Dosage: 500 MILLIGRAM DAILY; FOR THE NEXT TWENTY ONE DAYS
     Route: 048

REACTIONS (25)
  - Paraesthesia [Recovering/Resolving]
  - Tendon injury [Recovering/Resolving]
  - Urinary tract disorder [Recovering/Resolving]
  - Tendonitis [Recovering/Resolving]
  - Oxidative stress [Recovering/Resolving]
  - Depression [Recovering/Resolving]
  - Visual impairment [Recovering/Resolving]
  - Skin disorder [Recovering/Resolving]
  - Speech disorder [Recovering/Resolving]
  - Fatigue [Recovering/Resolving]
  - Muscle injury [Recovering/Resolving]
  - Gastrointestinal disorder [Recovering/Resolving]
  - Demyelination [Recovering/Resolving]
  - Muscle atrophy [Recovering/Resolving]
  - Neck pain [Recovering/Resolving]
  - Joint injury [Recovering/Resolving]
  - Anxiety [Recovering/Resolving]
  - Confusional state [Recovering/Resolving]
  - Memory impairment [Recovering/Resolving]
  - Musculoskeletal pain [Recovering/Resolving]
  - Tendon disorder [Recovering/Resolving]
  - Off label use [Unknown]
  - Amnesia [Recovering/Resolving]
  - Muscular weakness [Recovering/Resolving]
  - Disability [Recovering/Resolving]
